FAERS Safety Report 8744340 (Version 2)
Quarter: 2012Q4

REPORT INFORMATION
  Report Type: 
  Country: US (occurrence: US)
  Receive Date: 20120825
  Receipt Date: 20121004
  Transmission Date: 20130627
  Serious: No
  Sender: FDA-Public Use
  Company Number: US-009507513-1208USA001820

PATIENT
  Sex: Female
  Weight: 77.98 kg

DRUGS (4)
  1. PEGINTRON [Suspect]
     Indication: HEPATITIS C
     Dosage: 0.5 UNK,Redipen
     Dates: start: 20120705
  2. PEGINTRON [Suspect]
     Dosage: 0.4 UNK, Redipen
  3. REBETOL [Suspect]
     Indication: HEPATITIS C
     Dosage: UNK
     Dates: start: 20120705
  4. VICTRELIS [Suspect]
     Indication: HEPATITIS C
     Dosage: UNK
     Dates: start: 20120805

REACTIONS (17)
  - Drug abuse [Unknown]
  - Eating disorder [Unknown]
  - Hypophagia [Unknown]
  - Memory impairment [Unknown]
  - Memory impairment [Unknown]
  - Dysgeusia [Unknown]
  - Vomiting [Unknown]
  - Dry mouth [Unknown]
  - Weight decreased [Unknown]
  - Pruritus [Unknown]
  - Fatigue [Unknown]
  - Rash [Unknown]
  - Nausea [Unknown]
  - Asthenia [Unknown]
  - Weight decreased [Unknown]
  - Nausea [Unknown]
  - Vomiting [Unknown]
